FAERS Safety Report 5540886-0 (Version None)
Quarter: 2007Q4

REPORT INFORMATION
  Report Type: 
  Country: None (occurrence: None)
  Receive Date: 20071129
  Receipt Date: 20070702
  Transmission Date: 20080405
  Serious: Yes (Other)
  Sender: FDA-Public Use
  Company Number: US200707000579

PATIENT
  Age: 43 Year
  Sex: Male

DRUGS (6)
  1. ZYPREXA [Suspect]
     Dosage: 10 MG, 2/D, ORAL; 10MG, DAILY (1/D), ORAL
     Route: 048
     Dates: start: 20070604, end: 20070613
  2. ZYPREXA [Suspect]
     Dosage: 10 MG, 2/D, ORAL; 10MG, DAILY (1/D), ORAL
     Route: 048
     Dates: start: 20070614, end: 20070620
  3. HALDOL (HALOPERIDOL DECANOATE) [Concomitant]
  4. ABILIFY [Concomitant]
  5. DEPAKOTE [Concomitant]
  6. SEROQUEL [Concomitant]

REACTIONS (1)
  - BLOOD GLUCOSE INCREASED [None]
